FAERS Safety Report 13887103 (Version 1)
Quarter: 2017Q3

REPORT INFORMATION
  Report Type: Spontaneous
  Country: CR (occurrence: CR)
  Receive Date: 20170821
  Receipt Date: 20170821
  Transmission Date: 20171127
  Serious: Yes (Other)
  Sender: FDA-Public Use
  Company Number: CR-BAYER-2017-155687

PATIENT
  Age: 24 Year
  Sex: Female

DRUGS (2)
  1. YASMIN [Suspect]
     Active Substance: DROSPIRENONE\ETHINYL ESTRADIOL
     Indication: POLYCYSTIC OVARIES
     Dosage: UNK
     Route: 048
  2. YASMIN [Suspect]
     Active Substance: DROSPIRENONE\ETHINYL ESTRADIOL
     Indication: POLYCYSTIC OVARIES
     Dosage: UNK
     Route: 048
     Dates: start: 20070811, end: 2008

REACTIONS (3)
  - Product use in unapproved indication [Recovered/Resolved]
  - Off label use [None]
  - Ovarian neoplasm [Not Recovered/Not Resolved]

NARRATIVE: CASE EVENT DATE: 20070811
